FAERS Safety Report 14479773 (Version 1)
Quarter: 2018Q1

REPORT INFORMATION
  Report Type: Spontaneous
  Country: US (occurrence: US)
  Receive Date: 20180201
  Receipt Date: 20180201
  Transmission Date: 20180509
  Serious: Yes (Hospitalization)
  Sender: FDA-Public Use
  Company Number: None

PATIENT
  Age: 45 Year
  Sex: Female

DRUGS (15)
  1. METOCLOPRAM [Concomitant]
     Active Substance: METOCLOPRAMIDE
  2. OLANZAPINE. [Concomitant]
     Active Substance: OLANZAPINE
  3. SMZ-TMP [Concomitant]
     Active Substance: SULFAMETHOXAZOLE\TRIMETHOPRIM
  4. GABAPENTIN. [Concomitant]
     Active Substance: GABAPENTIN
  5. WARFARIN [Concomitant]
     Active Substance: WARFARIN
  6. SODIUM BICAR [Concomitant]
  7. SIROLIMUS 1MG [Suspect]
     Active Substance: SIROLIMUS
     Indication: HYPOKALAEMIA
     Route: 048
     Dates: start: 20160816
  8. CALCITROL [Concomitant]
     Active Substance: CALCITRIOL
  9. URSODIOL. [Concomitant]
     Active Substance: URSODIOL
  10. POT CL MICRO [Concomitant]
  11. TACROLIMUS,  1MG [Suspect]
     Active Substance: TACROLIMUS
     Indication: HYPOKALAEMIA
     Route: 048
     Dates: start: 20160816
  12. AMLODIPINE [Concomitant]
     Active Substance: AMLODIPINE BESYLATE
  13. HYDRALAZINE [Concomitant]
     Active Substance: HYDRALAZINE HYDROCHLORIDE
  14. LEVETIRACETAM. [Concomitant]
     Active Substance: LEVETIRACETAM
  15. PREDNISONE. [Concomitant]
     Active Substance: PREDNISONE

REACTIONS (3)
  - Small intestinal obstruction [None]
  - Pneumonia [None]
  - Blood culture positive [None]

NARRATIVE: CASE EVENT DATE: 20171204
